FAERS Safety Report 16755129 (Version 1)
Quarter: 2019Q3

REPORT INFORMATION
  Report Type: Spontaneous
  Country: DE (occurrence: DE)
  Receive Date: 20190829
  Receipt Date: 20190829
  Transmission Date: 20191005
  Serious: Yes (Hospitalization, Other)
  Sender: FDA-Public Use
  Company Number: DE-GLAXOSMITHKLINE-DE2019EME151893

PATIENT

DRUGS (1)
  1. VOLTAREN SCHMERZGEL [Suspect]
     Active Substance: DICLOFENAC DIETHYLAMINE
     Dosage: UNK

REACTIONS (6)
  - Contusion [Unknown]
  - Circulatory collapse [Unknown]
  - Fall [Unknown]
  - Face injury [Unknown]
  - Extra dose administered [Unknown]
  - Abdominal pain upper [Unknown]
